FAERS Safety Report 7737870-5 (Version None)
Quarter: 2011Q3

REPORT INFORMATION
  Report Type: 
  Country: None (occurrence: None)
  Receive Date: 20110908
  Receipt Date: 20110831
  Transmission Date: 20111222
  Serious: Yes (Other)
  Sender: FDA-Public Use
  Company Number: PHHY2011JP78909

PATIENT
  Age: 46 Year
  Sex: Female

DRUGS (1)
  1. METHYLERGOMETRINE MALEATE [Suspect]
     Indication: CARDIAC STRESS TEST

REACTIONS (3)
  - MYOCARDIAL ISCHAEMIA [None]
  - ARTERIOSPASM CORONARY [None]
  - SCAN MYOCARDIAL PERFUSION ABNORMAL [None]
